FAERS Safety Report 8964492 (Version 5)
Quarter: 2013Q2

REPORT INFORMATION
  Report Type: Spontaneous
  Country: US (occurrence: US)
  Receive Date: 20121214
  Receipt Date: 20130425
  Transmission Date: 20140414
  Serious: Yes (Disabling, Other)
  Sender: FDA-Public Use
  Company Number: US-JNJFOC-20121204436

PATIENT
  Age: 61 Year
  Sex: Male
  Weight: 81.65 kg

DRUGS (16)
  1. NUCYNTA [Suspect]
     Indication: PAIN
     Dosage: 4 TIMES A DAY
     Route: 048
     Dates: start: 2011, end: 201110
  2. NUCYNTA [Suspect]
     Indication: PAIN
     Dosage: PER DAY
     Route: 048
  3. NUCYNTA [Suspect]
     Indication: PAIN
     Dosage: 75MG EVERY 8 HOURS
     Route: 048
     Dates: start: 201303, end: 20130322
  4. NUCYNTA [Suspect]
     Indication: PAIN
     Dosage: THREE TIMES DAILY
     Route: 048
  5. NUCYNTA [Suspect]
     Indication: PAIN
     Dosage: 2 PER DAY
     Route: 048
     Dates: start: 201111
  6. NUCYNTA [Suspect]
     Indication: PAIN
     Dosage: 2 TIMES DAILY
     Route: 048
     Dates: start: 2013, end: 20130322
  7. TRAMADOL [Suspect]
     Indication: PAIN
     Route: 048
     Dates: start: 2012
  8. TRAMADOL [Suspect]
     Indication: PAIN
     Route: 048
     Dates: start: 2011, end: 2011
  9. HYDROCODONE [Suspect]
     Indication: PAIN
     Route: 048
     Dates: start: 201110, end: 201111
  10. AN UNKNOWN MEDICATION [Suspect]
     Indication: PROSTATE INFECTION
     Route: 065
     Dates: start: 2011, end: 2011
  11. AN UNKNOWN MEDICATION [Suspect]
     Indication: PAIN
     Route: 065
     Dates: start: 2011, end: 2011
  12. AMITRIPTYLINE [Suspect]
     Indication: PAIN
     Route: 065
     Dates: start: 2012
  13. CYMBALTA [Concomitant]
     Indication: PRODUCT USED FOR UNKNOWN INDICATION
     Dosage: TWICE PER DAY
     Route: 065
     Dates: start: 201210
  14. UNKNOWN MEDICATION [Concomitant]
     Indication: BLOOD PRESSURE
     Route: 065
  15. TOPIRAMATE [Concomitant]
     Indication: DYSURIA
     Route: 048
     Dates: start: 2012, end: 2012
  16. TOPIRAMATE [Concomitant]
     Indication: PAIN
     Route: 048
     Dates: start: 2012, end: 2012

REACTIONS (22)
  - Disability [Not Recovered/Not Resolved]
  - Neuropathy peripheral [Not Recovered/Not Resolved]
  - Drug ineffective [Not Recovered/Not Resolved]
  - Gait disturbance [Unknown]
  - Incorrect dose administered [Not Recovered/Not Resolved]
  - Pain [Not Recovered/Not Resolved]
  - Hypoaesthesia [Not Recovered/Not Resolved]
  - Paraesthesia [Recovering/Resolving]
  - Dysuria [Unknown]
  - Diarrhoea [Not Recovered/Not Resolved]
  - Constipation [Recovered/Resolved]
  - Dyspepsia [Unknown]
  - Insomnia [Not Recovered/Not Resolved]
  - Pruritus [Not Recovered/Not Resolved]
  - Wrong technique in drug usage process [Not Recovered/Not Resolved]
  - Chills [Recovering/Resolving]
  - Pain [Recovering/Resolving]
  - Burning sensation [Not Recovered/Not Resolved]
  - Nausea [Not Recovered/Not Resolved]
  - Malaise [Not Recovered/Not Resolved]
  - Adverse event [Unknown]
  - Paraesthesia [Not Recovered/Not Resolved]
